FAERS Safety Report 11697258 (Version 1)
Quarter: 2015Q4

REPORT INFORMATION
  Report Type: Spontaneous
  Country: US (occurrence: None)
  Receive Date: 20151104
  Receipt Date: 20151104
  Transmission Date: 20160304
  Serious: No
  Sender: FDA-Public Use
  Company Number: US-MDT-ADR-2015-02077

PATIENT
  Age: 43 Year
  Sex: Female

DRUGS (1)
  1. LIORESAL [Suspect]
     Active Substance: BACLOFEN
     Indication: MUSCLE SPASTICITY
     Dosage: 342.6 MCG/DAY

REACTIONS (5)
  - Medical device site irritation [None]
  - Muscle tightness [None]
  - Implant site extravasation [None]
  - Impaired healing [None]
  - Incision site complication [None]
